FAERS Safety Report 4651069-0 (Version None)
Quarter: 2005Q2

REPORT INFORMATION
  Report Type: 
  Country: None (occurrence: None)
  Receive Date: 20050429
  Receipt Date: 20050419
  Transmission Date: 20051028
  Serious: Yes (Hospitalization, Other)
  Sender: FDA-Public Use
  Company Number: 2005062934

PATIENT
  Age: 65 Year
  Sex: Female
  Weight: 104.3273 kg

DRUGS (3)
  1. BEXTRA [Suspect]
     Indication: ARTHRITIS
     Dosage: 10 MG (10 MG, 1 IN 1 D),ORAL
     Route: 048
     Dates: start: 20050101
  2. VICODON (HYDROCODONE BITARTRATE, PARACEMATOL) [Concomitant]
  3. LISINOPRIL [Concomitant]

REACTIONS (4)
  - DIARRHOEA [None]
  - LIPOMA [None]
  - LOSS OF CONSCIOUSNESS [None]
  - WHITE BLOOD CELL COUNT INCREASED [None]
